FAERS Safety Report 4562679-3 (Version None)
Quarter: 2005Q1

REPORT INFORMATION
  Report Type: 
  Country: None (occurrence: None)
  Receive Date: 20050124
  Receipt Date: 20050113
  Transmission Date: 20050727
  Serious: Yes (Death, Hospitalization)
  Sender: FDA-Public Use
  Company Number: 2005010780

PATIENT
  Age: 66 Year
  Sex: Female
  Weight: 49 kg

DRUGS (11)
  1. CAMPTOSAR [Suspect]
     Indication: COLON CANCER METASTATIC
     Dosage: 110 MG, INTRAVENOUS
     Route: 042
     Dates: start: 20031202, end: 20040713
  2. FLUOROURACIL [Suspect]
     Indication: COLON CANCER METASTATIC
     Dosage: 2850 MG, INTRAVENOUS
     Route: 042
     Dates: start: 20031202, end: 20040713
  3. FOLINIC ACID [Suspect]
     Indication: COLON CANCER METASTATIC
     Dosage: 770 MG, INTRAVENOUS
     Route: 042
     Dates: start: 20031202, end: 20040713
  4. GRANISETRON  HCL [Concomitant]
  5. ATROPINE SULFATE [Concomitant]
  6. DEXAMETHASONE [Concomitant]
  7. VERAPAMIL HYDROCHLORIDE [Concomitant]
  8. ESOMEPRAZOLE [Concomitant]
  9. FUROSEMIDE [Concomitant]
  10. AMILORIDE [Concomitant]
  11. METAMIZOLE SODIUM [Concomitant]

REACTIONS (6)
  - GENERAL PHYSICAL HEALTH DETERIORATION [None]
  - ILEUS [None]
  - OEDEMA [None]
  - ORAL CANDIDIASIS [None]
  - PNEUMONIA [None]
  - VOMITING [None]
